FAERS Safety Report 8645486 (Version 3)
Quarter: 2013Q2

REPORT INFORMATION
  Report Type: Spontaneous
  Country: US (occurrence: US)
  Receive Date: 20120702
  Receipt Date: 20130408
  Transmission Date: 20140414
  Serious: Yes (Hospitalization, Other)
  Sender: FDA-Public Use
  Company Number: US-ROCHE-1082653

PATIENT
  Age: 51 Year
  Sex: Female
  Weight: 64.47 kg

DRUGS (1)
  1. ACCUTANE [Suspect]
     Indication: ACNE
     Dosage: BETWEEN 1983 TO 1994 RECEIVED ISOTRETINOIN
     Route: 065
     Dates: start: 1991

REACTIONS (6)
  - Diverticulitis [Unknown]
  - Proctitis [Unknown]
  - Inflammatory bowel disease [Unknown]
  - Depression [Unknown]
  - Injury [Unknown]
  - Irritable bowel syndrome [Unknown]
